FAERS Safety Report 10569212 (Version 1)
Quarter: 2014Q4

REPORT INFORMATION
  Report Type: Spontaneous
  Country: FR (occurrence: FR)
  Receive Date: 20141106
  Receipt Date: 20141106
  Transmission Date: 20150529
  Serious: Yes (Hospitalization)
  Sender: FDA-Public Use
  Company Number: PHHY2014FR143513

PATIENT
  Age: 43 Year
  Sex: Female

DRUGS (1)
  1. AMOXICILLIN SANDOZ [Suspect]
     Active Substance: AMOXICILLIN
     Indication: PRODUCT USED FOR UNKNOWN INDICATION
     Dosage: 1 G, ONCE/SINGLE
     Route: 048
     Dates: start: 20140512, end: 20140512

REACTIONS (3)
  - Urticaria [Recovered/Resolved]
  - Type I hypersensitivity [None]
  - Oedema [Recovered/Resolved]

NARRATIVE: CASE EVENT DATE: 20140512
